FAERS Safety Report 4293065-1 (Version None)
Quarter: 2004Q1

REPORT INFORMATION
  Report Type: 
  Country: None (occurrence: None)
  Receive Date: 20040212
  Receipt Date: 20020212
  Transmission Date: 20041129
  Serious: No
  Sender: FDA-Public Use
  Company Number: US-GLAXOSMITHKLINE-A0359179A

PATIENT
  Age: 46 Year
  Sex: Female

DRUGS (8)
  1. PAXIL [Suspect]
     Route: 048
     Dates: start: 19991201, end: 20000901
  2. AMITRIPTYLINE HCL [Suspect]
     Dosage: 25MG PER DAY
     Route: 048
  3. NORVASC [Concomitant]
     Route: 048
  4. IBUPROFEN [Concomitant]
     Route: 048
     Dates: start: 20000914
  5. IMIPRAMINE [Concomitant]
  6. TRIFLUOPERAZINE HCL [Concomitant]
  7. ELAVIL [Concomitant]
     Dates: start: 19991201, end: 20000601
  8. TOFRANIL [Concomitant]

REACTIONS (2)
  - EMOTIONAL DISTRESS [None]
  - VITILIGO [None]
